FAERS Safety Report 15288670 (Version 1)
Quarter: 2018Q3

REPORT INFORMATION
  Report Type: Spontaneous
  Country: US (occurrence: US)
  Receive Date: 20180802
  Receipt Date: 20180802
  Transmission Date: 20181010
  Serious: Yes (Hospitalization)
  Sender: FDA-Public Use
  Company Number: None

PATIENT
  Age: 68 Year
  Sex: Female

DRUGS (26)
  1. FLONASE [Concomitant]
     Active Substance: FLUTICASONE PROPIONATE
  2. MAGNESIUM [Concomitant]
     Active Substance: MAGNESIUM
  3. PROTONIX [Concomitant]
     Active Substance: PANTOPRAZOLE SODIUM
  4. AZASAN 100MG [Concomitant]
     Indication: LIVER TRANSPLANT
     Route: 048
     Dates: start: 20170324
  5. VESICARE [Concomitant]
     Active Substance: SOLIFENACIN SUCCINATE
  6. BENTYL [Concomitant]
     Active Substance: DICYCLOMINE HYDROCHLORIDE
  7. OXYCODONE [Concomitant]
     Active Substance: OXYCODONE
  8. TACROLIMUS 1MG [Suspect]
     Active Substance: TACROLIMUS
     Indication: RENAL TRANSPLANT
     Route: 048
     Dates: start: 20130913
  9. ASPIRIN. [Concomitant]
     Active Substance: ASPIRIN
  10. SYMBICORT [Concomitant]
     Active Substance: BUDESONIDE\FORMOTEROL FUMARATE DIHYDRATE
  11. SYNTHROID [Concomitant]
     Active Substance: LEVOTHYROXINE SODIUM
  12. CULTURELLE [Concomitant]
     Active Substance: LACTOBACILLUS RHAMNOSUS
  13. PRIMIDONE. [Concomitant]
     Active Substance: PRIMIDONE
  14. LINZESS [Concomitant]
     Active Substance: LINACLOTIDE
  15. BUMETANIDE. [Concomitant]
     Active Substance: BUMETANIDE
  16. ZOFRAN [Concomitant]
     Active Substance: ONDANSETRON HYDROCHLORIDE
  17. CALCITRIOL. [Concomitant]
     Active Substance: CALCITRIOL
  18. SINGULAIR [Concomitant]
     Active Substance: MONTELUKAST SODIUM
  19. A?HYDROCORT [Concomitant]
     Active Substance: HYDROCORTISONE SODIUM SUCCINATE
  20. MIRAPEX [Concomitant]
     Active Substance: PRAMIPEXOLE DIHYDROCHLORIDE
  21. TACROLIMUS. [Concomitant]
     Active Substance: TACROLIMUS
  22. MECLIZINE [Concomitant]
     Active Substance: MECLIZINE HYDROCHLORIDE
  23. METOPROLOL TARTRATE. [Concomitant]
     Active Substance: METOPROLOL TARTRATE
  24. VIIBRYD [Concomitant]
     Active Substance: VILAZODONE HYDROCHLORIDE
  25. EPIPEN [Concomitant]
     Active Substance: EPINEPHRINE
  26. BACTRIM [Concomitant]
     Active Substance: SULFAMETHOXAZOLE\TRIMETHOPRIM

REACTIONS (2)
  - Abdominal pain upper [None]
  - Pain [None]
